FAERS Safety Report 9204451 (Version 1)
Quarter: 2013Q2

REPORT INFORMATION
  Report Type: Spontaneous
  Country: GB (occurrence: GB)
  Receive Date: 20130402
  Receipt Date: 20130402
  Transmission Date: 20140414
  Serious: Yes (Hospitalization, Other)
  Sender: FDA-Public Use
  Company Number: GB-PFIZER INC-GB9001411JUN2002

PATIENT
  Age: 19 Year
  Sex: Female

DRUGS (4)
  1. IBUPROFEN [Suspect]
     Indication: BACK PAIN
     Dosage: 400 MG, 3X/DAY
     Route: 048
  2. BECLOMETASONE [Concomitant]
     Indication: ASTHMA
     Dosage: 100 UG, UNK
     Route: 055
  3. FOLIC ACID [Concomitant]
     Indication: COELIAC DISEASE
     Dosage: 5 MILLIGRAM, QD
     Route: 048
  4. SALBUTAMOL [Concomitant]
     Indication: ASTHMA
     Dosage: 100 MG, UNK
     Route: 055

REACTIONS (1)
  - Lower respiratory tract infection [Recovered/Resolved]
